FAERS Safety Report 8734141 (Version 2)
Quarter: 2012Q4

REPORT INFORMATION
  Report Type: 
  Country: US (occurrence: US)
  Receive Date: 20120821
  Receipt Date: 20120906
  Transmission Date: 20130627
  Serious: Yes (Other)
  Sender: FDA-Public Use
  Company Number: US-PFIZER INC-2012202501

PATIENT
  Age: 70 Year
  Sex: Female
  Weight: 89.25 kg

DRUGS (8)
  1. CHANTIX [Suspect]
     Indication: SMOKING CESSATION THERAPY
     Dosage: 0.5 mg, 1x/day
     Route: 048
     Dates: start: 201208, end: 20120816
  2. ULTRAM [Concomitant]
     Indication: PAIN
     Dosage: UNK, as needed
  3. ASPIRIN [Concomitant]
     Dosage: 81 mg, UNK
  4. PLAVIX [Concomitant]
     Dosage: 75 mg, UNK
  5. TENORETIC [Concomitant]
     Dosage: 100/25 mg, UNK
  6. PRINIVIL [Concomitant]
     Dosage: 40 mg, UNK
  7. ZOCOR [Concomitant]
     Dosage: UNK
  8. ADVIL [Concomitant]
     Dosage: UNK

REACTIONS (2)
  - Hallucination [Recovered/Resolved]
  - Psychotic disorder [Recovered/Resolved]
